FAERS Safety Report 4944555-7 (Version None)
Quarter: 2006Q1

REPORT INFORMATION
  Report Type: 
  Country: None (occurrence: None)
  Receive Date: 20060315
  Receipt Date: 20050316
  Transmission Date: 20060701
  Serious: No
  Sender: FDA-Public Use
  Company Number: 163-20785-0502047

PATIENT
  Age: 22 Year
  Sex: Female

DRUGS (2)
  1. COMPAZINE [Suspect]
     Indication: NAUSEA
     Route: 065
  2. THALIDOMIDE [Concomitant]
     Dosage: 250MG PER DAY
     Route: 048
     Dates: start: 20050223, end: 20050301

REACTIONS (2)
  - PREGNANCY TEST POSITIVE [None]
  - PREGNANCY TEST URINE POSITIVE [None]
